FAERS Safety Report 20558121 (Version 3)
Quarter: 2022Q1

REPORT INFORMATION
  Report Type: Report from Study
  Country: US (occurrence: US)
  Receive Date: 20220307
  Receipt Date: 20220311
  Transmission Date: 20220423
  Serious: Yes (Other)
  Sender: FDA-Public Use
  Company Number: US-UCBSA-2022011177

PATIENT
  Age: 26 Year
  Sex: Male

DRUGS (2)
  1. LACOSAMIDE [Suspect]
     Active Substance: LACOSAMIDE
     Indication: Seizure
     Dosage: 150 MILLIGRAM, 2X/DAY (BID)
  2. LACOSAMIDE [Suspect]
     Active Substance: LACOSAMIDE
     Dosage: 150 MILLIGRAM, 3X/DAY (TID)

REACTIONS (7)
  - Brain neoplasm malignant [Unknown]
  - Seizure [Not Recovered/Not Resolved]
  - Brain operation [Not Recovered/Not Resolved]
  - Inability to afford medication [Unknown]
  - Pregnancy of partner [Unknown]
  - Overdose [Unknown]
  - Product use issue [Unknown]

NARRATIVE: CASE EVENT DATE: 20200101
